FAERS Safety Report 5066793-8 (Version None)
Quarter: 2006Q3

REPORT INFORMATION
  Report Type: 
  Country: None (occurrence: None)
  Receive Date: 20060710
  Receipt Date: 20051111
  Transmission Date: 20061208
  Serious: Yes (Other)
  Sender: FDA-Public Use
  Company Number: US-2005-023820

PATIENT
  Age: 51 Year
  Sex: Female
  Weight: 48 kg

DRUGS (1)
  1. ULTRAVIST 300 [Suspect]
     Indication: COMPUTERISED TOMOGRAM ABDOMEN
     Dosage: 150 ML, 1 DOSE, INTRAVENOUS
     Route: 042
     Dates: start: 20051111, end: 20051111

REACTIONS (5)
  - ERYTHEMA [None]
  - HYPOAESTHESIA ORAL [None]
  - HYPOTENSION [None]
  - SWELLING FACE [None]
  - URINARY INCONTINENCE [None]
